FAERS Safety Report 9929938 (Version 1)
Quarter: 2014Q1

REPORT INFORMATION
  Report Type: Spontaneous
  Country: TR (occurrence: TR)
  Receive Date: 20140227
  Receipt Date: 20140227
  Transmission Date: 20141002
  Serious: Yes (Other)
  Sender: FDA-Public Use
  Company Number: PHHY2014TR019998

PATIENT
  Age: 53 Year
  Sex: Male

DRUGS (5)
  1. AMIODARONE [Suspect]
     Indication: ATRIAL FIBRILLATION
     Dosage: 100 MG, QD
  2. VERAPAMIL [Concomitant]
     Dosage: 240 MG, QD
  3. IRBESARTAN [Concomitant]
     Dosage: 150 MG, QD
  4. ACETYLSALICYLIC ACID [Concomitant]
  5. LEVOTHYROXINE [Concomitant]
     Dosage: 50 UG, UNK

REACTIONS (4)
  - Acquired hydrocele [Unknown]
  - Epididymitis [Unknown]
  - Scrotal pain [Recovering/Resolving]
  - Scrotal oedema [Recovering/Resolving]
